FAERS Safety Report 24189653 (Version 1)
Quarter: 2024Q3

REPORT INFORMATION
  Report Type: Spontaneous
  Country: ES (occurrence: ES)
  Receive Date: 20240808
  Receipt Date: 20240808
  Transmission Date: 20241017
  Serious: Yes (Other)
  Sender: PFIZER
  Company Number: None

PATIENT
  Age: 48 Year
  Sex: Female

DRUGS (5)
  1. CYTARABINE [Suspect]
     Active Substance: CYTARABINE
     Indication: Hodgkin^s disease nodular sclerosis stage II
     Dosage: 1 DF, EVERY 3 WEEKS
     Route: 042
     Dates: start: 20220812, end: 20221004
  2. CISPLATIN [Suspect]
     Active Substance: CISPLATIN
     Indication: Hodgkin^s disease nodular sclerosis stage II
     Dosage: 1 DF, EVERY 3 WEEKS
     Route: 042
     Dates: start: 20220812, end: 20221004
  3. METHYLPREDNISOLONE SODIUM SUCCINATE [Suspect]
     Active Substance: METHYLPREDNISOLONE SODIUM SUCCINATE
     Indication: Hodgkin^s disease nodular sclerosis stage II
     Dosage: 1 DF, EVERY 3 WEEKS
     Route: 042
     Dates: start: 20220812, end: 20221004
  4. BRENTUXIMAB VEDOTIN [Suspect]
     Active Substance: BRENTUXIMAB VEDOTIN
     Indication: Hodgkin^s disease nodular sclerosis stage II
     Dosage: 140 MG, EVERY 3 WEEKS
     Route: 042
     Dates: start: 20221115, end: 20231003
  5. ETOPOSIDE [Suspect]
     Active Substance: ETOPOSIDE
     Indication: Hodgkin^s disease nodular sclerosis stage II
     Dosage: 1 DF, EVERY 3 WEEKS
     Route: 042
     Dates: start: 20220812, end: 20221004

REACTIONS (1)
  - Axonal and demyelinating polyneuropathy [Not Recovered/Not Resolved]

NARRATIVE: CASE EVENT DATE: 20221106
